FAERS Safety Report 4903512-7 (Version None)
Quarter: 2006Q1

REPORT INFORMATION
  Report Type: 
  Country: None (occurrence: None)
  Receive Date: 20060206
  Receipt Date: 20060206
  Transmission Date: 20060701
  Serious: Yes (Life-Threatening)
  Sender: FDA-Public Use
  Company Number: None

PATIENT
  Sex: Male
  Weight: 75.2971 kg

DRUGS (1)
  1. GEODON [Suspect]
     Indication: SCHIZOPHRENIA
     Dosage: 60MG BID ORAL
     Route: 048
     Dates: start: 20051209, end: 20060107

REACTIONS (8)
  - DYSPNOEA [None]
  - EYE SWELLING [None]
  - LOCAL SWELLING [None]
  - NAUSEA [None]
  - RASH [None]
  - RASH GENERALISED [None]
  - URTICARIA [None]
  - VOMITING [None]
